FAERS Safety Report 21401972 (Version 1)
Quarter: 2022Q3

REPORT INFORMATION
  Report Type: Spontaneous
  Country: US (occurrence: None)
  Receive Date: 20220930
  Receipt Date: 20220930
  Transmission Date: 20221026
  Serious: Yes (unspecified)
  Sender: FDA-Public Use
  Company Number: None

PATIENT
  Age: 56 Year
  Sex: Male

DRUGS (1)
  1. VYVGART [Suspect]
     Active Substance: EFGARTIGIMOD ALFA-FCAB

REACTIONS (10)
  - Symptom recurrence [None]
  - Dysphagia [None]
  - Facial paresis [None]
  - Muscular weakness [None]
  - Fatigue [None]
  - Dry throat [None]
  - Throat irritation [None]
  - Cough [None]
  - Infusion related reaction [None]
  - Sensitisation [None]
